FAERS Safety Report 17463270 (Version 2)
Quarter: 2020Q1

REPORT INFORMATION
  Report Type: Spontaneous
  Country: GB (occurrence: GB)
  Receive Date: 20200226
  Receipt Date: 20200227
  Transmission Date: 20200409
  Serious: No
  Sender: FDA-Public Use
  Company Number: GB-IPSEN BIOPHARMACEUTICALS, INC.-2020-03643

PATIENT
  Age: 57 Year
  Sex: Female

DRUGS (2)
  1. BOTOX [Suspect]
     Active Substance: ONABOTULINUMTOXINA
     Indication: SKIN WRINKLING
     Route: 065
  2. AZZALURE [Suspect]
     Active Substance: BOTULINUM TOXIN TYPE A
     Indication: SKIN WRINKLING
     Dosage: 60 UNITS
     Route: 065

REACTIONS (20)
  - Vision blurred [Unknown]
  - Impaired healing [Unknown]
  - Alopecia [Unknown]
  - Skin indentation [Unknown]
  - Gingival pain [Unknown]
  - Suspected counterfeit product [Unknown]
  - Lip discolouration [Recovering/Resolving]
  - Tooth disorder [Unknown]
  - Flushing [Unknown]
  - Local reaction [Unknown]
  - Eye irritation [Unknown]
  - Toothache [Unknown]
  - Facial wasting [Unknown]
  - Facial paresis [Unknown]
  - Prescribed overdose [Unknown]
  - Dermatitis contact [Unknown]
  - Unevaluable event [Unknown]
  - Blood oestrogen decreased [Unknown]
  - Periorbital swelling [Unknown]
  - Burning sensation [Unknown]
